FAERS Safety Report 22049157 (Version 1)
Quarter: 2023Q1

REPORT INFORMATION
  Report Type: Spontaneous
  Country: US (occurrence: None)
  Receive Date: 20230228
  Receipt Date: 20230228
  Transmission Date: 20230418
  Serious: Yes (Hospitalization, Other)
  Sender: FDA-Public Use
  Company Number: None

PATIENT
  Age: 68 Year
  Sex: Male
  Weight: 85.5 kg

DRUGS (7)
  1. GAMMAKED [Suspect]
     Active Substance: HUMAN IMMUNOGLOBULIN G
     Indication: Chronic inflammatory demyelinating polyradiculoneuropathy
     Dosage: OTHER FREQUENCY : X2 DAYS Q2WEEKS;?
     Route: 042
  2. TIZANIDINE [Concomitant]
     Active Substance: TIZANIDINE
  3. XARELTO [Concomitant]
     Active Substance: RIVAROXABAN
  4. LASIX [Concomitant]
     Active Substance: FUROSEMIDE
  5. OXYCODONE [Concomitant]
     Active Substance: OXYCODONE
  6. GABAPENTIN [Concomitant]
     Active Substance: GABAPENTIN
  7. ALPRAZOLAM [Concomitant]
     Active Substance: ALPRAZOLAM

REACTIONS (2)
  - Acute myocardial infarction [None]
  - Infusion related reaction [None]

NARRATIVE: CASE EVENT DATE: 20230227
